FAERS Safety Report 4837466-9 (Version None)
Quarter: 2005Q4

REPORT INFORMATION
  Report Type: 
  Country: None (occurrence: None)
  Receive Date: 20051122
  Receipt Date: 20051107
  Transmission Date: 20060501
  Serious: Yes (Hospitalization)
  Sender: FDA-Public Use
  Company Number: US_0511123703

PATIENT
  Age: 30 Year
  Sex: Male

DRUGS (3)
  1. ZYPREXA [Suspect]
     Dosage: 140 MG OTHER
     Route: 050
  2. DEPAKENE [Concomitant]
  3. PROMAZIN (PROMAZINE HYDROCHLORIDE) [Concomitant]

REACTIONS (9)
  - BLOOD PRESSURE INCREASED [None]
  - COMA [None]
  - DRUG TOXICITY [None]
  - HEART RATE INCREASED [None]
  - HYPOREFLEXIA [None]
  - LOSS OF CONSCIOUSNESS [None]
  - MYDRIASIS [None]
  - OVERDOSE [None]
  - PSYCHOMOTOR HYPERACTIVITY [None]
